FAERS Safety Report 14252832 (Version 2)
Quarter: 2017Q4

REPORT INFORMATION
  Report Type: Report from Study
  Country: None (occurrence: GB)
  Receive Date: 20171206
  Receipt Date: 20171210
  Transmission Date: 20180321
  Serious: Yes (Hospitalization, Other)
  Sender: FDA-Public Use
  Company Number: GB-ABBVIE-17K-167-2181248-00

PATIENT
  Sex: Male

DRUGS (2)
  1. HUMIRA [Suspect]
     Active Substance: ADALIMUMAB
     Indication: ANKYLOSING SPONDYLITIS
     Route: 058
  2. HUMIRA [Suspect]
     Active Substance: ADALIMUMAB
     Route: 058

REACTIONS (9)
  - Loss of consciousness [Unknown]
  - Cardiac disorder [Unknown]
  - Musculoskeletal pain [Unknown]
  - Infection [Unknown]
  - Atrial fibrillation [Unknown]
  - Pain in extremity [Not Recovered/Not Resolved]
  - Syncope [Unknown]
  - Neck pain [Unknown]
  - Drug effect incomplete [Unknown]

NARRATIVE: CASE EVENT DATE: 2017
